FAERS Safety Report 8619265-5 (Version None)
Quarter: 2012Q3

REPORT INFORMATION
  Report Type: 
  Country: None (occurrence: None)
  Receive Date: 20120824
  Receipt Date: 20120824
  Transmission Date: 20120928
  Serious: Yes (Hospitalization)
  Sender: FDA-Public Use
  Company Number: SG-BAYER-2012-087567

PATIENT
  Sex: Male

DRUGS (2)
  1. CLARITHROMYCIN [Suspect]
  2. CIPROFLOXACIN HCL [Suspect]

REACTIONS (3)
  - WHEEZING [None]
  - DYSPNOEA [None]
  - STRIDOR [None]
